FAERS Safety Report 8545244-2 (Version None)
Quarter: 2012Q3

REPORT INFORMATION
  Report Type: 
  Country: None (occurrence: None)
  Receive Date: 20120727
  Receipt Date: 20120713
  Transmission Date: 20120928
  Serious: Yes (Life-Threatening, Hospitalization, Other)
  Sender: FDA-Public Use
  Company Number: US-ASTELLAS-2012US006241

PATIENT
  Sex: Male

DRUGS (7)
  1. TAGAMET [Concomitant]
     Indication: PRODUCT USED FOR UNKNOWN INDICATION
     Dosage: UNK
     Route: 048
  2. MESTINON [Concomitant]
     Indication: PRODUCT USED FOR UNKNOWN INDICATION
     Dosage: 60 MG, TID
     Route: 048
  3. PROGRAF [Suspect]
     Indication: MYASTHENIA GRAVIS
     Dosage: 5 MG, UID/QD
     Route: 048
  4. LORTAB [Concomitant]
     Indication: PRODUCT USED FOR UNKNOWN INDICATION
     Dosage: UNK
     Route: 065
  5. PREDNISONE TAB [Suspect]
     Indication: PRODUCT USED FOR UNKNOWN INDICATION
     Dosage: 20 MG, UID/QD
     Route: 065
  6. LISINOPRIL [Concomitant]
     Indication: PRODUCT USED FOR UNKNOWN INDICATION
     Dosage: UNK
     Route: 065
  7. PREDNISONE TAB [Suspect]
     Dosage: 30 MG, UID/QD
     Route: 065

REACTIONS (7)
  - OFF LABEL USE [None]
  - TREATMENT NONCOMPLIANCE [None]
  - INFLUENZA [None]
  - PNEUMONIA ASPIRATION [None]
  - ABDOMINAL PAIN [None]
  - MYASTHENIA GRAVIS [None]
  - GASTROINTESTINAL TUBE INSERTION [None]
